FAERS Safety Report 11937809 (Version 4)
Quarter: 2016Q2

REPORT INFORMATION
  Report Type: Spontaneous
  Country: SE (occurrence: SE)
  Receive Date: 20160122
  Receipt Date: 20160406
  Transmission Date: 20160815
  Serious: Yes (Other)
  Sender: FDA-Public Use
  Company Number: SE-PFIZER INC-2016001599

PATIENT
  Age: 73 Year
  Sex: Female

DRUGS (7)
  1. NEURONTIN [Interacting]
     Active Substance: GABAPENTIN
     Indication: SPINAL COLUMN STENOSIS
     Dosage: 300 MG, 3X/DAY
     Route: 048
     Dates: start: 20151229, end: 201601
  2. NEURONTIN [Interacting]
     Active Substance: GABAPENTIN
     Indication: TREMOR
     Dosage: 100 MG, 2X/DAY
  3. NEURONTIN [Interacting]
     Active Substance: GABAPENTIN
     Dosage: 100 MG, 1X/DAY
  4. ALVEDON [Interacting]
     Active Substance: ACETAMINOPHEN
     Dosage: 1330 MG 1-3 TIMES DAILY
     Dates: start: 201512
  5. NEURONTIN [Interacting]
     Active Substance: GABAPENTIN
     Indication: PARAESTHESIA
     Dosage: 100 MG, 3X/DAY
     Route: 048
     Dates: start: 201601
  6. NEURONTIN [Suspect]
     Active Substance: GABAPENTIN
     Indication: FORMICATION
     Dosage: 100 MG, 3X/DAY
     Route: 048
     Dates: start: 20151115
  7. NEURONTIN [Interacting]
     Active Substance: GABAPENTIN
     Indication: BACK PAIN
     Dosage: 200 MG, 3X/DAY
     Route: 048
     Dates: start: 20151210

REACTIONS (15)
  - Mental impairment [Not Recovered/Not Resolved]
  - Drug interaction [Not Recovered/Not Resolved]
  - Malaise [Not Recovered/Not Resolved]
  - Feeling abnormal [Not Recovered/Not Resolved]
  - Dysphonia [Not Recovered/Not Resolved]
  - Intentional product use issue [Unknown]
  - Oral mucosal blistering [Unknown]
  - Drug ineffective [Not Recovered/Not Resolved]
  - Nasopharyngitis [Not Recovered/Not Resolved]
  - Dizziness [Not Recovered/Not Resolved]
  - Product use issue [Unknown]
  - Wound [Recovered/Resolved]
  - Oropharyngeal pain [Not Recovered/Not Resolved]
  - Hyperhidrosis [Not Recovered/Not Resolved]
  - Aphthous ulcer [Recovered/Resolved]

NARRATIVE: CASE EVENT DATE: 20151219
